FAERS Safety Report 7646006-0 (Version None)
Quarter: 2011Q3

REPORT INFORMATION
  Report Type: 
  Country: None (occurrence: None)
  Receive Date: 20110731
  Receipt Date: 20110725
  Transmission Date: 20111222
  Serious: Yes (Hospitalization)
  Sender: FDA-Public Use
  Company Number: BE-AMGEN-BELSP2011030291

PATIENT
  Age: 44 Year
  Sex: Male
  Weight: 85 kg

DRUGS (7)
  1. NOXAFIL [Concomitant]
     Dosage: 200 MG, TID
     Route: 048
     Dates: start: 20100701
  2. RAPAMUNE [Concomitant]
     Dosage: 2 MG, UNK
     Route: 048
  3. ZOLINZA [Concomitant]
     Dosage: 500 MG, UNK
     Route: 048
  4. OMEPRAZOLE [Concomitant]
     Dosage: 20 MG, UNK
     Route: 048
     Dates: start: 20101101
  5. BACTRIM DS [Concomitant]
     Dosage: UNK
     Route: 048
  6. NPLATE [Suspect]
     Indication: OFF LABEL USE
     Dosage: UNK UNK, QWK
     Route: 058
     Dates: start: 20110331, end: 20110428
  7. CELLCEPT [Concomitant]
     Dosage: 500 MG, UNK
     Route: 048
     Dates: start: 20101101

REACTIONS (2)
  - LEUKAEMIA RECURRENT [None]
  - DEEP VEIN THROMBOSIS [None]
